FAERS Safety Report 4970858-6 (Version None)
Quarter: 2006Q2

REPORT INFORMATION
  Report Type: 
  Country: None (occurrence: None)
  Receive Date: 20060406
  Receipt Date: 20060321
  Transmission Date: 20061013
  Serious: Yes (Hospitalization)
  Sender: FDA-Public Use
  Company Number: BR200603005546

PATIENT
  Age: 62 Year
  Sex: Female
  Weight: 61 kg

DRUGS (6)
  1. FORTEO [Suspect]
     Indication: OSTEOPOROSIS
     Dosage: 20 UG, DAILY (1/D), ORAL
     Route: 048
     Dates: start: 20051101
  2. FORTEO PEN (FORTEO PEN) PEN, DISPOSABLE [Concomitant]
  3. SPIRONOLACTONE [Concomitant]
  4. MONOCORDIL (ISOSORBIDE MONONITRATE) [Concomitant]
  5. INDAPAMIDE [Concomitant]
  6. FUROSEMIDE [Concomitant]

REACTIONS (2)
  - CEREBROVASCULAR ACCIDENT [None]
  - TRANSIENT ISCHAEMIC ATTACK [None]
